FAERS Safety Report 10262804 (Version 2)
Quarter: 2014Q2

REPORT INFORMATION
  Report Type: Report from Study
  Country: US (occurrence: US)
  Receive Date: 20140626
  Receipt Date: 20140626
  Transmission Date: 20141212
  Serious: Yes (Other)
  Sender: FDA-Public Use
  Company Number: US-MYLANLABS-2013S1017235

PATIENT
  Age: 71 Year
  Sex: Male

DRUGS (11)
  1. CLOZAPINE TABLETS [Suspect]
     Route: 048
     Dates: start: 20130719, end: 20130917
  2. SINEMET [Concomitant]
     Dosage: 25/100MG
  3. ASA [Concomitant]
  4. NAMENDA [Concomitant]
  5. LISINOPRIL [Concomitant]
  6. SENOKOT [Concomitant]
  7. LITHIUM [Concomitant]
  8. MIRTAZAPINE [Concomitant]
  9. COLACE [Concomitant]
  10. ARICEPT [Concomitant]
  11. LEXAPRO [Concomitant]

REACTIONS (1)
  - Granulocytopenia [Not Recovered/Not Resolved]
